FAERS Safety Report 9940561 (Version 1)
Quarter: 2014Q1

REPORT INFORMATION
  Report Type: Spontaneous
  Country: US (occurrence: US)
  Receive Date: 20140303
  Receipt Date: 20140303
  Transmission Date: 20141002
  Serious: Yes (Other)
  Sender: FDA-Public Use
  Company Number: US-PFIZER INC-2014060198

PATIENT
  Sex: Male

DRUGS (1)
  1. EFFEXOR XR [Suspect]
     Dosage: 75 MG, UNK
     Dates: end: 201402

REACTIONS (4)
  - Drug withdrawal syndrome [Unknown]
  - Confusional state [Unknown]
  - Lethargy [Unknown]
  - Tremor [Unknown]
